FAERS Safety Report 17398872 (Version 1)
Quarter: 2020Q1

REPORT INFORMATION
  Report Type: Report from Study
  Country: US (occurrence: US)
  Receive Date: 20200210
  Receipt Date: 20200210
  Transmission Date: 20200409
  Serious: Yes (Hospitalization, Other)
  Sender: FDA-Public Use
  Company Number: US-GILEAD-2020-0450310

PATIENT
  Age: 12 Year
  Sex: Female

DRUGS (7)
  1. PROMETHAZINE [Concomitant]
     Active Substance: PROMETHAZINE HYDROCHLORIDE
  2. OLANZAPINE. [Concomitant]
     Active Substance: OLANZAPINE
  3. SMZ-TMP [Concomitant]
     Active Substance: SULFAMETHOXAZOLE\TRIMETHOPRIM
  4. AMOXICILLIN. [Concomitant]
     Active Substance: AMOXICILLIN
  5. LORAZEPAM. [Concomitant]
     Active Substance: LORAZEPAM
  6. AZTREONAM LYSINE [Suspect]
     Active Substance: AZTREONAM LYSINE
     Indication: CYSTIC FIBROSIS
     Dosage: 75 MG, TID, 28 DAYS ON 28 DAYS OFF
     Route: 055
     Dates: start: 20190608
  7. LAMOTRIGINE. [Concomitant]
     Active Substance: LAMOTRIGINE

REACTIONS (2)
  - Gastrointestinal infection [Unknown]
  - Cystic fibrosis [Unknown]

NARRATIVE: CASE EVENT DATE: 202001
